FAERS Safety Report 21371937 (Version 2)
Quarter: 2022Q4

REPORT INFORMATION
  Report Type: Report from Study
  Country: GB (occurrence: None)
  Receive Date: 20220923
  Receipt Date: 20221010
  Transmission Date: 20230113
  Serious: Yes (Hospitalization)
  Sender: FDA-Public Use
  Company Number: GB-Eisai Medical Research-EC-2022-124085

PATIENT
  Age: 52 Year
  Sex: Female
  Weight: 54.1 kg

DRUGS (14)
  1. LENVATINIB [Suspect]
     Active Substance: LENVATINIB
     Indication: Neoplasm malignant
     Dosage: FLUCTUATED DOSAGE, STARTING DOSE: 20MILLGRAM
     Route: 048
     Dates: start: 20190118, end: 20220905
  2. LENVATINIB [Suspect]
     Active Substance: LENVATINIB
     Indication: Endometrial cancer
     Route: 048
     Dates: start: 20220906, end: 20220913
  3. PEMBROLIZUMAB [Suspect]
     Active Substance: PEMBROLIZUMAB
     Indication: Neoplasm malignant
     Route: 041
     Dates: start: 20190118, end: 20201230
  4. PEMBROLIZUMAB [Suspect]
     Active Substance: PEMBROLIZUMAB
     Indication: Endometrial cancer
  5. IBUPROFEN [Concomitant]
     Active Substance: IBUPROFEN
     Dates: start: 20190330
  6. LOPERAMIDE [Concomitant]
     Active Substance: LOPERAMIDE
     Dates: start: 20190525
  7. LEVOTHYROXINE SODIUM [Concomitant]
     Active Substance: LEVOTHYROXINE SODIUM
     Dates: start: 20200714
  8. ACETAMINOPHEN [Concomitant]
     Active Substance: ACETAMINOPHEN
     Dates: start: 20200909
  9. APRACLONIDINE [Concomitant]
     Active Substance: APRACLONIDINE HYDROCHLORIDE
     Dates: start: 20211126
  10. DORZOLAMIDE HYDROCHLORIDE AND TIMOLOL MALEATE [Concomitant]
     Active Substance: DORZOLAMIDE HYDROCHLORIDE\TIMOLOL MALEATE
     Dates: start: 20211126
  11. NEPAFENAC [Concomitant]
     Active Substance: NEPAFENAC
     Dates: start: 20211126
  12. BETAMETHASONE VALERATE [Concomitant]
     Active Substance: BETAMETHASONE VALERATE
     Dates: start: 20220705
  13. CETIRIZINE HYDROCHLORIDE [Concomitant]
     Active Substance: CETIRIZINE HYDROCHLORIDE
     Dates: start: 20220705
  14. FEXOFENADINE HYDROCHLORIDE [Concomitant]
     Active Substance: FEXOFENADINE HYDROCHLORIDE
     Dates: start: 20220705

REACTIONS (5)
  - Chromaturia [Not Recovered/Not Resolved]
  - Ocular icterus [Not Recovered/Not Resolved]
  - Alanine aminotransferase increased [Not Recovered/Not Resolved]
  - Aspartate aminotransferase increased [Not Recovered/Not Resolved]
  - Blood bilirubin increased [Not Recovered/Not Resolved]

NARRATIVE: CASE EVENT DATE: 20220816
